FAERS Safety Report 25232850 (Version 1)
Quarter: 2025Q2

REPORT INFORMATION
  Report Type: Report from Study
  Country: US (occurrence: US)
  Receive Date: 20250424
  Receipt Date: 20250424
  Transmission Date: 20250716
  Serious: Yes (Other)
  Sender: JOHNSON AND JOHNSON
  Company Number: US-JNJFOC-20250421721

PATIENT
  Age: 32 Year
  Sex: Female

DRUGS (8)
  1. SPRAVATO [Suspect]
     Active Substance: ESKETAMINE
     Indication: Depression
     Route: 045
     Dates: start: 20241209, end: 20241223
  2. SPRAVATO [Suspect]
     Active Substance: ESKETAMINE
     Route: 045
     Dates: start: 20241228, end: 20241228
  3. SPRAVATO [Suspect]
     Active Substance: ESKETAMINE
     Route: 045
     Dates: start: 20250104, end: 20250104
  4. SPRAVATO [Suspect]
     Active Substance: ESKETAMINE
     Route: 045
     Dates: start: 20250210, end: 20250331
  5. SPRAVATO [Suspect]
     Active Substance: ESKETAMINE
     Route: 045
     Dates: start: 20250414, end: 20250414
  6. PRISTIQ EXTENDED-RELEASE [Concomitant]
     Active Substance: DESVENLAFAXINE SUCCINATE
  7. LAMICTAL [Concomitant]
     Active Substance: LAMOTRIGINE
  8. LURASIDONE [Concomitant]
     Active Substance: LURASIDONE

REACTIONS (1)
  - Dissociation [Recovered/Resolved]

NARRATIVE: CASE EVENT DATE: 20250414
